FAERS Safety Report 6332490-1 (Version None)
Quarter: 2009Q3

REPORT INFORMATION
  Report Type: 
  Country: None (occurrence: None)
  Receive Date: 20090828
  Receipt Date: 20080811
  Transmission Date: 20100115
  Serious: No
  Sender: FDA-Public Use
  Company Number: A0742217A

PATIENT
  Sex: Male

DRUGS (2)
  1. MALARONE [Suspect]
     Indication: MALARIA
     Dosage: 1TAB PER DAY
     Route: 048
     Dates: start: 20080701, end: 20080801
  2. UNKNOWN [Concomitant]

REACTIONS (5)
  - DIARRHOEA [None]
  - HEADACHE [None]
  - MALARIA [None]
  - PYREXIA [None]
  - VOMITING [None]
